FAERS Safety Report 7063919-1 (Version None)
Quarter: 2010Q4

REPORT INFORMATION
  Report Type: 
  Country: None (occurrence: None)
  Receive Date: 20101026
  Receipt Date: 20101019
  Transmission Date: 20110411
  Serious: Yes (Other)
  Sender: FDA-Public Use
  Company Number: CA-US-EMD SERONO, INC.-7007733

PATIENT
  Sex: Female

DRUGS (2)
  1. REBIF [Suspect]
     Indication: MULTIPLE SCLEROSIS
     Route: 058
     Dates: start: 20070703, end: 20100608
  2. REBIF [Suspect]
     Route: 058
     Dates: start: 20100615

REACTIONS (3)
  - BLOOD LUTEINISING HORMONE ABNORMAL [None]
  - GILBERT'S SYNDROME [None]
  - HYPERBILIRUBINAEMIA [None]
